FAERS Safety Report 5015767-1 (Version None)
Quarter: 2006Q2

REPORT INFORMATION
  Report Type: 
  Country: None (occurrence: None)
  Receive Date: 20060525
  Receipt Date: 20060509
  Transmission Date: 20061013
  Serious: Yes (Hospitalization)
  Sender: FDA-Public Use
  Company Number: 224091

PATIENT
  Age: 64 Year
  Sex: Male

DRUGS (1)
  1. RAPTIVA [Suspect]
     Indication: PSORIASIS
     Dosage: 0.9, 1/WEEK
     Dates: start: 20041221, end: 20060313

REACTIONS (11)
  - DIABETES MELLITUS NON-INSULIN-DEPENDENT [None]
  - DIPLOPIA [None]
  - HYPOAESTHESIA [None]
  - INFLAMMATION [None]
  - MUSCLE SPASMS [None]
  - NERVE ROOT LESION [None]
  - NEURITIS [None]
  - NEUROPATHY [None]
  - PARALYSIS [None]
  - PSORIASIS [None]
  - SUPRAVENTRICULAR EXTRASYSTOLES [None]
